FAERS Safety Report 10234904 (Version 1)
Quarter: 2014Q2

REPORT INFORMATION
  Report Type: Spontaneous
  Country: US (occurrence: US)
  Receive Date: 20140613
  Receipt Date: 20140613
  Transmission Date: 20141212
  Serious: Yes (Other)
  Sender: FDA-Public Use
  Company Number: US-ROCHE-1417489

PATIENT
  Age: 37 Year
  Sex: Female

DRUGS (4)
  1. RITUXAN [Suspect]
     Indication: VASCULITIS CEREBRAL
     Dosage: ONE GRAM 2 TIMES
     Route: 065
  2. RITUXAN [Suspect]
     Dosage: ONE GRAM 2 TIMES
     Route: 065
  3. RITUXAN [Suspect]
     Route: 065
     Dates: start: 20140318
  4. CYTOXAN [Concomitant]

REACTIONS (2)
  - Mononeuritis [Unknown]
  - No therapeutic response [Unknown]
